FAERS Safety Report 25019563 (Version 1)
Quarter: 2025Q1

REPORT INFORMATION
  Report Type: Spontaneous
  Country: AR (occurrence: AR)
  Receive Date: 20250227
  Receipt Date: 20250227
  Transmission Date: 20250408
  Serious: Yes (Other)
  Sender: AMGEN
  Company Number: AR-PFIZER INC-202400319931

PATIENT
  Age: 82 Year
  Sex: Male

DRUGS (1)
  1. ENBREL [Suspect]
     Active Substance: ETANERCEPT
     Indication: Rheumatoid arthritis
     Dosage: 50 MG, WEEKLY
     Route: 065
     Dates: start: 20090302

REACTIONS (12)
  - Myocardial infarction [Unknown]
  - Joint injury [Unknown]
  - Pain [Recovering/Resolving]
  - Hypokinesia [Recovering/Resolving]
  - Arthritis [Recovering/Resolving]
  - Injection site pain [Recovering/Resolving]
  - Weight decreased [Recovering/Resolving]
  - Injection site haemorrhage [Recovering/Resolving]
  - Device deployment issue [Unknown]
  - Peripheral swelling [Unknown]
  - Product storage error [Unknown]
  - Poor quality product administered [Unknown]

NARRATIVE: CASE EVENT DATE: 20250201
